FAERS Safety Report 4992424-9 (Version None)
Quarter: 2006Q2

REPORT INFORMATION
  Report Type: 
  Country: None (occurrence: None)
  Receive Date: 20060502
  Receipt Date: 20060419
  Transmission Date: 20061013
  Serious: Yes (Other)
  Sender: FDA-Public Use
  Company Number: 2006053857

PATIENT
  Sex: Male
  Weight: 99.7913 kg

DRUGS (3)
  1. VIAGRA [Suspect]
     Indication: ERECTILE DYSFUNCTION
     Dosage: UNKNOWN (50 MG, UNKNOWN), UNKNOWN
     Route: 065
  2. TIAZAC [Concomitant]
  3. DIURETICS (DIURETICS) [Concomitant]

REACTIONS (3)
  - ARTHROPATHY [None]
  - FALL [None]
  - VISUAL ACUITY REDUCED [None]
